FAERS Safety Report 7594122-4 (Version None)
Quarter: 2011Q3

REPORT INFORMATION
  Report Type: 
  Country: None (occurrence: None)
  Receive Date: 20110706
  Receipt Date: 20110328
  Transmission Date: 20111222
  Serious: Yes (Other)
  Sender: FDA-Public Use
  Company Number: US-PURDUE-USA-2010-0061057

PATIENT
  Sex: Female

DRUGS (2)
  1. OXYCONTIN [Suspect]
     Dosage: 40 MG, SEE TEXT
     Route: 048
     Dates: end: 20101201
  2. OXYCONTIN [Suspect]
     Indication: PAIN
     Dosage: 80 MG, SEE TEXT
     Route: 048
     Dates: start: 20100101, end: 20101201

REACTIONS (15)
  - HEART RATE DECREASED [None]
  - COUGH [None]
  - HEART RATE IRREGULAR [None]
  - MEDICATION RESIDUE [None]
  - NAUSEA [None]
  - PRODUCTIVE COUGH [None]
  - METABOLIC DISORDER [None]
  - DERMATITIS ALLERGIC [None]
  - WEIGHT DECREASED [None]
  - VOMITING [None]
  - DYSPNOEA [None]
  - INCREASED UPPER AIRWAY SECRETION [None]
  - CARDIAC PACEMAKER INSERTION [None]
  - SYNCOPE [None]
  - ANXIETY [None]
